FAERS Safety Report 19379637 (Version 1)
Quarter: 2021Q2

REPORT INFORMATION
  Report Type: Spontaneous
  Country: US (occurrence: US)
  Receive Date: 20210607
  Receipt Date: 20210607
  Transmission Date: 20210717
  Serious: Yes (Other)
  Sender: FDA-Public Use
  Company Number: US-AMGEN-USASP2021083993

PATIENT
  Sex: Female

DRUGS (2)
  1. MVASI [Suspect]
     Active Substance: BEVACIZUMAB-AWWB
     Indication: OVARIAN CANCER
     Dosage: 700 MILLIGRAM
     Route: 065
     Dates: start: 201912
  2. MVASI [Suspect]
     Active Substance: BEVACIZUMAB-AWWB
     Indication: OFF LABEL USE

REACTIONS (2)
  - Diverticulitis [Unknown]
  - Off label use [Unknown]
